FAERS Safety Report 13854370 (Version 1)
Quarter: 2017Q3

REPORT INFORMATION
  Report Type: Spontaneous
  Country: GB (occurrence: GB)
  Receive Date: 20170809
  Receipt Date: 20170809
  Transmission Date: 20171127
  Serious: Yes (Disabling)
  Sender: FDA-Public Use
  Company Number: GB-BAUSCH-BL-2017-023266

PATIENT
  Age: 10 Decade
  Sex: Male
  Weight: 63.5 kg

DRUGS (3)
  1. LAMOTRIGIN [Concomitant]
     Active Substance: LAMOTRIGINE
     Indication: PRODUCT USED FOR UNKNOWN INDICATION
  2. LOSARTAN POTASSIUM. [Concomitant]
     Active Substance: LOSARTAN POTASSIUM
     Indication: PRODUCT USED FOR UNKNOWN INDICATION
  3. PREDNISOLONE. [Suspect]
     Active Substance: PREDNISOLONE
     Indication: BLOOD DISORDER
     Route: 048
     Dates: start: 19591111, end: 19691111

REACTIONS (2)
  - Growth retardation [Recovered/Resolved with Sequelae]
  - Mental disorder [Unknown]
